FAERS Safety Report 13241336 (Version 1)
Quarter: 2017Q1

REPORT INFORMATION
  Report Type: Spontaneous
  Country: US (occurrence: US)
  Receive Date: 20170216
  Receipt Date: 20170216
  Transmission Date: 20170428
  Serious: No
  Sender: FDA-Public Use
  Company Number: US-MYLANLABS-2016M1013063

PATIENT
  Age: 39 Year
  Sex: Female

DRUGS (1)
  1. EPIPEN [Suspect]
     Active Substance: EPINEPHRINE
     Indication: HYPERSENSITIVITY
     Dosage: 0.3 MG, UNK
     Dates: start: 20160323, end: 20160323

REACTIONS (5)
  - Injection site haemorrhage [Recovered/Resolved]
  - Heart rate increased [Recovered/Resolved]
  - Drug administered at inappropriate site [Recovered/Resolved]
  - Injection site bruising [Not Recovered/Not Resolved]
  - Feeling jittery [Recovered/Resolved]

NARRATIVE: CASE EVENT DATE: 20160323
